FAERS Safety Report 19913297 (Version 1)
Quarter: 2021Q4

REPORT INFORMATION
  Report Type: Report from Study
  Country: CL (occurrence: CL)
  Receive Date: 20211004
  Receipt Date: 20211004
  Transmission Date: 20220304
  Serious: Yes (Other)
  Sender: FDA-Public Use
  Company Number: CL-NOVARTISPH-NVSC2021CL123013

PATIENT
  Age: 59 Year
  Sex: Female

DRUGS (3)
  1. COSENTYX [Suspect]
     Active Substance: SECUKINUMAB
     Indication: Psoriatic arthropathy
     Dosage: 300 MG, QMO
     Route: 058
     Dates: start: 20210520
  2. COSENTYX [Suspect]
     Active Substance: SECUKINUMAB
     Dosage: 300 MG, QMO
     Route: 058
     Dates: start: 20210525
  3. COSENTYX [Suspect]
     Active Substance: SECUKINUMAB
     Dosage: 300 MG, QMO
     Route: 058
     Dates: start: 20210912

REACTIONS (12)
  - Choking [Unknown]
  - Dyspnoea [Unknown]
  - Respiratory fatigue [Unknown]
  - Fatigue [Unknown]
  - Dry throat [Unknown]
  - Feeling abnormal [Unknown]
  - Memory impairment [Unknown]
  - Nervousness [Unknown]
  - Pain [Unknown]
  - Paranoia [Unknown]
  - Tension [Unknown]
  - Fear [Unknown]
